FAERS Safety Report 14906517 (Version 3)
Quarter: 2018Q2

REPORT INFORMATION
  Report Type: Spontaneous
  Country: JP (occurrence: JP)
  Receive Date: 20180517
  Receipt Date: 20180606
  Transmission Date: 20180711
  Serious: Yes (Hospitalization, Other)
  Sender: FDA-Public Use
  Company Number: JP-ROCHE-2124168

PATIENT
  Age: 78 Year
  Sex: Male
  Weight: 44 kg

DRUGS (4)
  1. HERCEPTIN [Suspect]
     Active Substance: TRASTUZUMAB
     Route: 041
     Dates: start: 20180515
  2. HERCEPTIN [Suspect]
     Active Substance: TRASTUZUMAB
     Indication: GASTRIC CANCER
     Dosage: DOSAGE WAS UNCERTAIN.
     Route: 041
     Dates: start: 20180328
  3. RANDA [Suspect]
     Active Substance: CISPLATIN
     Indication: GASTRIC CANCER
     Dosage: LAST RECEIVED: 28/MAR/2018?DOSAGE WAS UNCERTAIN.
     Route: 041
     Dates: start: 20180328
  4. XELODA [Suspect]
     Active Substance: CAPECITABINE
     Indication: GASTRIC CANCER
     Dosage: LAST DOSE: 10/APR/2018?2 WEEKS ADMINSTRATION FOLLOWED BY 1 WEEK REST
     Route: 048
     Dates: start: 20180328

REACTIONS (8)
  - Pancytopenia [Recovered/Resolved]
  - Dehydration [Unknown]
  - Vomiting [Unknown]
  - Neutrophil count decreased [Unknown]
  - Nausea [Unknown]
  - Renal impairment [Recovering/Resolving]
  - Mouth ulceration [Recovered/Resolved]
  - Diarrhoea [Unknown]

NARRATIVE: CASE EVENT DATE: 20180410
